FAERS Safety Report 21837825 (Version 3)
Quarter: 2023Q1

REPORT INFORMATION
  Report Type: Spontaneous
  Country: US (occurrence: US)
  Receive Date: 20230109
  Receipt Date: 20230117
  Transmission Date: 20230417
  Serious: Yes (Other)
  Sender: FDA-Public Use
  Company Number: US-PFIZER INC-PV202300002983

PATIENT
  Age: 81 Year
  Sex: Female

DRUGS (1)
  1. XELJANZ XR [Suspect]
     Active Substance: TOFACITINIB CITRATE
     Dosage: UNK

REACTIONS (6)
  - Joint dislocation [Recovering/Resolving]
  - Hip surgery [Unknown]
  - Upper limb fracture [Unknown]
  - Staphylococcal infection [Unknown]
  - Depression [Unknown]
  - Pain [Unknown]
